FAERS Safety Report 4268271-2 (Version None)
Quarter: 2004Q1

REPORT INFORMATION
  Report Type: 
  Country: None (occurrence: None)
  Receive Date: 20040108
  Receipt Date: 20031226
  Transmission Date: 20041129
  Serious: Yes (Life-Threatening)
  Sender: FDA-Public Use
  Company Number: RU-JNJFOC-20031204944

PATIENT
  Age: 45 Year
  Sex: Female

DRUGS (1)
  1. REMICADE [Suspect]
     Indication: RHEUMATOID ARTHRITIS
     Dosage: 200 MG, INTRAVENOUS
     Route: 042
     Dates: start: 20031114, end: 20031226

REACTIONS (7)
  - BACK PAIN [None]
  - DIZZINESS [None]
  - HYPERAEMIA [None]
  - INFUSION RELATED REACTION [None]
  - NAUSEA [None]
  - RESPIRATORY DISORDER [None]
  - VOMITING [None]
